FAERS Safety Report 15840301 (Version 4)
Quarter: 2022Q1

REPORT INFORMATION
  Report Type: Report from Study
  Country: US (occurrence: US)
  Receive Date: 20190117
  Receipt Date: 20220307
  Transmission Date: 20220423
  Serious: Yes (Hospitalization)
  Sender: FDA-Public Use
  Company Number: US-BAXTER-2019BAX000892

PATIENT
  Age: 14 Year
  Sex: Male
  Weight: 68 kg

DRUGS (13)
  1. RUXOLITINIB [Suspect]
     Active Substance: RUXOLITINIB
     Indication: Acute lymphocytic leukaemia
     Dosage: TABLET, FIRST DOSE
     Route: 048
     Dates: start: 20181120
  2. RUXOLITINIB [Suspect]
     Active Substance: RUXOLITINIB
     Dosage: LAST DOSE PRIOR TO SAE
     Route: 048
     Dates: start: 20181204, end: 20181204
  3. VINCRISTINE [Suspect]
     Active Substance: VINCRISTINE
     Indication: Acute lymphocytic leukaemia
     Dosage: FIRST DOSE AND LAST DOSE PRIOR TO SAE
     Route: 042
     Dates: start: 20181204, end: 20181204
  4. VINCRISTINE [Suspect]
     Active Substance: VINCRISTINE
     Dosage: LAST DOSE PRIOR TO THE SAES OF FEBRILE NEUTROPENIA AND  ACUTE PANCREATITIS.
     Route: 042
     Dates: start: 20181211, end: 20181211
  5. CYTARABINE [Suspect]
     Active Substance: CYTARABINE
     Indication: Acute lymphocytic leukaemia
     Route: 042
     Dates: start: 20181120
  6. CYTARABINE [Suspect]
     Active Substance: CYTARABINE
     Dosage: LAST DOSE PRIOR TO SAE
     Route: 042
     Dates: start: 20181127, end: 20181127
  7. CYTARABINE [Suspect]
     Active Substance: CYTARABINE
     Dosage: LAST DOSE PRIOR TO THE SAES OF FEBRILE NEUTROPENIA AND  ACUTE PANCREATITIS.
     Route: 042
     Dates: start: 20181130, end: 20181130
  8. PEGASPARGASE [Suspect]
     Active Substance: PEGASPARGASE
     Indication: Acute lymphocytic leukaemia
     Route: 042
  9. PEGASPARGASE [Suspect]
     Active Substance: PEGASPARGASE
     Dosage: LAST DOSE PRIOR TO SAE
     Route: 042
     Dates: start: 20181204, end: 20181204
  10. MERCAPTOPURINE [Suspect]
     Active Substance: MERCAPTOPURINE
     Indication: Acute lymphocytic leukaemia
     Dosage: TABLET
     Route: 048
     Dates: start: 20181120
  11. MERCAPTOPURINE [Suspect]
     Active Substance: MERCAPTOPURINE
     Dosage: LAST DOSE PRIOR TO SAE
     Route: 048
     Dates: start: 20181204, end: 20181204
  12. MERCAPTOPURINE [Suspect]
     Active Substance: MERCAPTOPURINE
     Route: 048
     Dates: start: 20181120, end: 20181120
  13. MERCAPTOPURINE [Suspect]
     Active Substance: MERCAPTOPURINE
     Dosage: LAST DOSE PRIOR TO THE SAES OF FEBRILE NEUTROPENIA AND  ACUTE PANCREATITIS.
     Route: 048
     Dates: start: 20181203, end: 20181203

REACTIONS (8)
  - Febrile neutropenia [Recovered/Resolved]
  - Fatigue [Recovered/Resolved]
  - Decreased appetite [Recovered/Resolved]
  - Gastroenteritis [Recovered/Resolved]
  - Neutropenia [Recovered/Resolved]
  - Pancreatitis acute [Recovered/Resolved]
  - Febrile neutropenia [Unknown]
  - Neuropathy peripheral [Unknown]

NARRATIVE: CASE EVENT DATE: 20181207
